FAERS Safety Report 9962292 (Version 1)
Quarter: 2014Q1

REPORT INFORMATION
  Report Type: Spontaneous
  Country: GB (occurrence: GB)
  Receive Date: 20140305
  Receipt Date: 20140305
  Transmission Date: 20141002
  Serious: Yes (Other)
  Sender: FDA-Public Use
  Company Number: GB-TEVA-464927ISR

PATIENT
  Age: 63 Year
  Sex: Female
  Weight: 71 kg

DRUGS (6)
  1. GABAPENTIN [Suspect]
     Dates: start: 20131016
  2. DIAZEPAM [Concomitant]
     Dates: start: 20131204, end: 20140130
  3. FLUOXETINE [Concomitant]
     Dates: start: 20131009
  4. IBUPROFEN [Concomitant]
     Dates: start: 20131230, end: 20140106
  5. LANSOPRAZOLE [Concomitant]
     Dates: start: 20131204, end: 20140130
  6. ACIDEX [Concomitant]
     Dates: start: 20131230, end: 20140111

REACTIONS (1)
  - Asthma [Recovering/Resolving]
